FAERS Safety Report 6898869-4 (Version None)
Quarter: 2010Q3

REPORT INFORMATION
  Report Type: 
  Country: None (occurrence: None)
  Receive Date: 20100802
  Receipt Date: 20071214
  Transmission Date: 20110219
  Serious: No
  Sender: FDA-Public Use
  Company Number: US-PFIZER INC-2007106034

PATIENT
  Sex: Female

DRUGS (2)
  1. LYRICA [Suspect]
  2. TRILEPTAL [Concomitant]

REACTIONS (3)
  - AMNESIA [None]
  - COORDINATION ABNORMAL [None]
  - DIZZINESS [None]
